FAERS Safety Report 18722247 (Version 1)
Quarter: 2021Q1

REPORT INFORMATION
  Report Type: Spontaneous
  Country: US (occurrence: US)
  Receive Date: 20210111
  Receipt Date: 20210111
  Transmission Date: 20210419
  Serious: Yes (Hospitalization, Other)
  Sender: FDA-Public Use
  Company Number: US-APOTEX-2021AP000038

PATIENT
  Age: 43 Year
  Sex: Male

DRUGS (1)
  1. METFORMIN [Suspect]
     Active Substance: METFORMIN HYDROCHLORIDE
     Indication: TYPE 2 DIABETES MELLITUS
     Dosage: 480000 MILLIGRAM
     Route: 048

REACTIONS (3)
  - Suicide attempt [Unknown]
  - Lactic acidosis [Recovered/Resolved]
  - Intentional overdose [Unknown]
